FAERS Safety Report 14683205 (Version 1)
Quarter: 2018Q1

REPORT INFORMATION
  Report Type: Spontaneous
  Country: US (occurrence: US)
  Receive Date: 20180326
  Receipt Date: 20180326
  Transmission Date: 20180509
  Serious: Yes (Death)
  Sender: FDA-Public Use
  Company Number: None

PATIENT
  Age: 91 Year
  Sex: Female
  Weight: 43.09 kg

DRUGS (4)
  1. EZETIMBE [Concomitant]
     Active Substance: EZETIMIBE
  2. MULTIVITAMIN [Concomitant]
     Active Substance: VITAMINS
  3. LISINOPRIL 20MG TABLET [Suspect]
     Active Substance: LISINOPRIL
     Indication: HYPERTENSION
     Route: 048
  4. HCTZ [Concomitant]
     Active Substance: HYDROCHLOROTHIAZIDE

REACTIONS (2)
  - Brain injury [None]
  - Angioedema [None]

NARRATIVE: CASE EVENT DATE: 20180306
